FAERS Safety Report 18288470 (Version 2)
Quarter: 2020Q4

REPORT INFORMATION
  Report Type: Spontaneous
  Country: SK (occurrence: SK)
  Receive Date: 20200921
  Receipt Date: 20201104
  Transmission Date: 20210113
  Serious: Yes (Disabling, Other)
  Sender: FDA-Public Use
  Company Number: SK-SA-2020SA247841

PATIENT

DRUGS (3)
  1. METHYLPREDNISOLONE [METHYLPREDNISOLONE SODIUM SUCCINATE] [Concomitant]
     Active Substance: METHYLPREDNISOLONE SODIUM SUCCINATE
     Dosage: 3000 MG
  2. SOLU-MEDROL [Concomitant]
     Active Substance: METHYLPREDNISOLONE SODIUM SUCCINATE
     Dosage: 4000 MG
     Route: 042
  3. AUBAGIO [Suspect]
     Active Substance: TERIFLUNOMIDE
     Indication: RELAPSING-REMITTING MULTIPLE SCLEROSIS
     Dosage: UNK
     Dates: start: 201809, end: 201907

REACTIONS (11)
  - Demyelination [Recovering/Resolving]
  - Hypoacusis [Recovering/Resolving]
  - Parosmia [Recovering/Resolving]
  - Musculoskeletal stiffness [Recovering/Resolving]
  - Vision blurred [Recovering/Resolving]
  - Condition aggravated [Recovering/Resolving]
  - Incontinence [Recovering/Resolving]
  - Paraesthesia [Recovering/Resolving]
  - Unintentional use for unapproved indication [Unknown]
  - Balance disorder [Recovering/Resolving]
  - Muscular weakness [Recovering/Resolving]

NARRATIVE: CASE EVENT DATE: 201903
